FAERS Safety Report 6861930-4 (Version None)
Quarter: 2010Q3

REPORT INFORMATION
  Report Type: 
  Country: None (occurrence: None)
  Receive Date: 20100720
  Receipt Date: 20100720
  Transmission Date: 20110219
  Serious: No
  Sender: FDA-Public Use
  Company Number: None

PATIENT
  Sex: Male
  Weight: 77.1115 kg

DRUGS (2)
  1. LEVAQUIN [Suspect]
     Indication: GASTROINTESTINAL DISORDER
     Dosage: 750 MG ONCE PER DAY OROPHARINGEAL
     Route: 049
     Dates: start: 20060916, end: 20060918
  2. LEVAQUIN [Suspect]
     Indication: TENDERNESS
     Dosage: 750 MG ONCE PER DAY OROPHARINGEAL
     Route: 049
     Dates: start: 20060916, end: 20060918

REACTIONS (3)
  - JOINT RANGE OF MOTION DECREASED [None]
  - MUSCULOSKELETAL DISORDER [None]
  - PERIPHERAL COLDNESS [None]
